FAERS Safety Report 18216246 (Version 1)
Quarter: 2020Q3

REPORT INFORMATION
  Report Type: Spontaneous
  Country: AR (occurrence: AR)
  Receive Date: 20200901
  Receipt Date: 20200901
  Transmission Date: 20201103
  Serious: Yes (Other)
  Sender: FDA-Public Use
  Company Number: AR-AMGEN-ARGSP2020141088

PATIENT
  Age: 73 Year
  Sex: Male

DRUGS (1)
  1. ENBREL [Suspect]
     Active Substance: ETANERCEPT
     Indication: RHEUMATOID ARTHRITIS
     Dosage: 50 MG, WEEKLY
     Route: 065
     Dates: start: 20180201

REACTIONS (6)
  - Joint swelling [Unknown]
  - Cerebral disorder [Unknown]
  - Mobility decreased [Unknown]
  - Urinary tract infection [Unknown]
  - Condition aggravated [Unknown]
  - Single functional kidney [Unknown]

NARRATIVE: CASE EVENT DATE: 20200820
